FAERS Safety Report 13477805 (Version 1)
Quarter: 2017Q2

REPORT INFORMATION
  Report Type: Spontaneous
  Country: US (occurrence: US)
  Receive Date: 20170425
  Receipt Date: 20170425
  Transmission Date: 20170830
  Serious: No
  Sender: FDA-Public Use
  Company Number: None

PATIENT
  Age: 69 Year
  Sex: Female
  Weight: 56.25 kg

DRUGS (5)
  1. LISINIPRIL [Concomitant]
  2. BYSTOLIC [Concomitant]
     Active Substance: NEBIVOLOL HYDROCHLORIDE
  3. YUVAFEM [Suspect]
     Active Substance: ESTRADIOL HEMIHYDRATE
     Indication: VULVOVAGINAL DRYNESS
     Dosage: ?          OTHER STRENGTH:MCG;QUANTITY:1 TABLET(S);OTHER FREQUENCY:2 TIME/WEEK;?
     Route: 067
     Dates: start: 20170217
  4. FLINTSTONE CHEWABLES [Concomitant]
  5. NEBULIZE SODIUM CHLORIDE [Concomitant]

REACTIONS (4)
  - Drug ineffective [None]
  - Product packaging issue [None]
  - Product substitution issue [None]
  - Product container issue [None]

NARRATIVE: CASE EVENT DATE: 20170217
